FAERS Safety Report 20787855 (Version 1)
Quarter: 2022Q2

REPORT INFORMATION
  Report Type: Spontaneous
  Country: US (occurrence: US)
  Receive Date: 20220505
  Receipt Date: 20220505
  Transmission Date: 20220721
  Serious: No
  Sender: FDA-Public Use
  Company Number: US-AMGEN-USASP2022076778

PATIENT
  Age: 71 Year
  Sex: Female

DRUGS (1)
  1. EVENITY [Suspect]
     Active Substance: ROMOSOZUMAB-AQQG
     Indication: Osteoporosis postmenopausal
     Dosage: UNK, FOR EVERY 5 WEEKS
     Route: 065
     Dates: start: 202202

REACTIONS (2)
  - Inappropriate schedule of product administration [Unknown]
  - Product communication issue [Unknown]

NARRATIVE: CASE EVENT DATE: 20220101
